FAERS Safety Report 4948643-0 (Version None)
Quarter: 2006Q1

REPORT INFORMATION
  Report Type: 
  Country: None (occurrence: None)
  Receive Date: 20060313
  Receipt Date: 20060228
  Transmission Date: 20060701
  Serious: Yes (Death)
  Sender: FDA-Public Use
  Company Number: KR-2006-001497

PATIENT
  Age: 6 Year
  Sex: Male

DRUGS (2)
  1. ULTRAVIST 370 [Suspect]
     Indication: UROGRAM
     Dosage: 30 ML, 1 DOSE, IV DRIP
     Route: 041
     Dates: start: 20060126, end: 20060126
  2. NORMAL SALINE [Concomitant]

REACTIONS (6)
  - ABDOMINAL PAIN [None]
  - CYANOSIS [None]
  - IATROGENIC INJURY [None]
  - PALLOR [None]
  - PROCEDURAL COMPLICATION [None]
  - PROCEDURAL PAIN [None]
